FAERS Safety Report 19834531 (Version 1)
Quarter: 2021Q3

REPORT INFORMATION
  Report Type: Spontaneous
  Country: US (occurrence: US)
  Receive Date: 20210915
  Receipt Date: 20210915
  Transmission Date: 20211014
  Serious: Yes (Other)
  Sender: FDA-Public Use
  Company Number: US-LEADIANT BIOSCIENCES INC-2020STPI000323

PATIENT
  Sex: Male

DRUGS (13)
  1. MATULANE [Suspect]
     Active Substance: PROCARBAZINE HYDROCHLORIDE
     Indication: HODGKIN^S DISEASE
     Dosage: UNK
  2. VIDAZA [Concomitant]
     Active Substance: AZACITIDINE
  3. IFOSFAMIDE. [Concomitant]
     Active Substance: IFOSFAMIDE
  4. VINBLASTINE SULFATE. [Concomitant]
     Active Substance: VINBLASTINE SULFATE
  5. ETOPOSIDE. [Concomitant]
     Active Substance: ETOPOSIDE
  6. ADRIAMYCIN [Concomitant]
     Active Substance: DOXORUBICIN HYDROCHLORIDE
  7. DACARBAZINE. [Concomitant]
     Active Substance: DACARBAZINE
  8. RITUXAN [Concomitant]
     Active Substance: RITUXIMAB
  9. ONCOVIN [Concomitant]
     Active Substance: VINCRISTINE SULFATE
  10. PREDNISONE. [Concomitant]
     Active Substance: PREDNISONE
  11. CARBOPLATIN. [Concomitant]
     Active Substance: CARBOPLATIN
  12. BLEOMYCIN SULFATE [Concomitant]
     Active Substance: BLEOMYCIN SULFATE
  13. MECHLORETHAMINE HYDROCHLORIDE [Concomitant]
     Active Substance: MECHLORETHAMINE HYDROCHLORIDE

REACTIONS (1)
  - Myelodysplastic syndrome [Unknown]
